FAERS Safety Report 4826742-1 (Version None)
Quarter: 2005Q4

REPORT INFORMATION
  Report Type: 
  Country: None (occurrence: None)
  Receive Date: 20051111
  Receipt Date: 20051111
  Transmission Date: 20060501
  Serious: No
  Sender: FDA-Public Use
  Company Number: None

PATIENT
  Sex: Male
  Weight: 86.1834 kg

DRUGS (2)
  1. TOPAMAX [Suspect]
     Indication: PAIN
     Dosage: 25 MG   AT NIGHT   PO
     Route: 048
  2. VIAGRA [Suspect]
     Indication: ERECTILE DYSFUNCTION
     Dosage: 100 MG   AS NEEDED  PO
     Route: 048

REACTIONS (3)
  - SUDDEN HEARING LOSS [None]
  - VERTIGO [None]
  - VESTIBULAR DISORDER [None]
